FAERS Safety Report 14952544 (Version 1)
Quarter: 2018Q2

REPORT INFORMATION
  Report Type: Spontaneous
  Country: US (occurrence: US)
  Receive Date: 20180530
  Receipt Date: 20180530
  Transmission Date: 20180711
  Serious: Yes (Death, Other)
  Sender: FDA-Public Use
  Company Number: US-PFIZER INC-2018213666

PATIENT
  Age: 56 Year
  Sex: Male

DRUGS (3)
  1. KETOROLAC TROMETHAMINE. [Suspect]
     Active Substance: KETOROLAC TROMETHAMINE
     Indication: MYALGIA
     Dosage: 60 MG (THREE DOSES THE 15 MG/1 ML, AND THE 30 MG/1 ML AND 60 MG/2 ML)
     Route: 030
     Dates: start: 20160505, end: 20160505
  2. KETOROLAC TROMETHAMINE. [Suspect]
     Active Substance: KETOROLAC TROMETHAMINE
     Indication: BACK PAIN
     Dosage: 60 MG (THREE DOSES THE 15 MG/1 ML, AND THE 30 MG/1 ML AND 60 MG/2 ML)
     Route: 030
     Dates: start: 20160430, end: 20160430
  3. KETOROLAC TROMETHAMINE. [Suspect]
     Active Substance: KETOROLAC TROMETHAMINE
     Indication: PAIN IN EXTREMITY

REACTIONS (8)
  - Pelvic abscess [Unknown]
  - Embolic stroke [Unknown]
  - Myositis [Unknown]
  - Staphylococcal sepsis [Unknown]
  - Renal failure [Unknown]
  - Streptococcal infection [Unknown]
  - Death [Fatal]
  - Septic embolus [Unknown]

NARRATIVE: CASE EVENT DATE: 20160530
